FAERS Safety Report 8778094 (Version 2)
Quarter: 2012Q4

REPORT INFORMATION
  Report Type: 
  Country: ZA (occurrence: ZA)
  Receive Date: 20120912
  Receipt Date: 20121122
  Transmission Date: 20130627
  Serious: Yes (Hospitalization)
  Sender: FDA-Public Use
  Company Number: ZA-ELI_LILLY_AND_COMPANY-ZA201209001641

PATIENT
  Sex: Male

DRUGS (7)
  1. HUMALOG 50% LISPRO, 50% NPL [Suspect]
     Indication: TYPE 2 DIABETES MELLITUS
     Dosage: 65 u, qd
     Route: 058
     Dates: start: 2012
  2. HUMALOG 50% LISPRO, 50% NPL [Suspect]
     Dosage: UNK UNK, tid
  3. HUMALOG 50% LISPRO, 50% NPL [Suspect]
     Dosage: UNK, prn
  4. GLUCOPHAGE [Concomitant]
     Indication: TYPE 2 DIABETES MELLITUS
     Dosage: 1500 mg, each evening
     Route: 048
  5. ECOTRIN [Concomitant]
     Indication: PLATELET AGGREGATION INHIBITION
     Dosage: 1 DF, each morning
     Route: 048
  6. ANTIHYPERTENSIVES [Concomitant]
     Indication: BLOOD PRESSURE ABNORMAL
     Dosage: 1 DF, qd
     Route: 048
  7. LIPID MODIFYING AGENTS [Concomitant]
     Indication: BLOOD CHOLESTEROL ABNORMAL
     Dosage: 1 DF, each evening

REACTIONS (2)
  - Diabetic nephropathy [Recovering/Resolving]
  - Nephrotic syndrome [Recovering/Resolving]
